FAERS Safety Report 16173730 (Version 1)
Quarter: 2019Q2

REPORT INFORMATION
  Report Type: Spontaneous
  Country: US (occurrence: US)
  Receive Date: 20190408
  Receipt Date: 20190408
  Transmission Date: 20190711
  Serious: No
  Sender: FDA-Public Use
  Company Number: None

PATIENT
  Age: 28 Year
  Sex: Female
  Weight: 90 kg

DRUGS (3)
  1. PEROXATINE [Concomitant]
  2. OLANZAPINE. [Concomitant]
     Active Substance: OLANZAPINE
  3. SELENIUM SULFIDE TOPICAL SUSPENSION USP, 2.5% (LOTION) [Suspect]
     Active Substance: SELENIUM SULFIDE
     Indication: TINEA VERSICOLOUR
     Dosage: ?          QUANTITY:1 LOTION;?
     Route: 061
     Dates: start: 20190404, end: 20190407

REACTIONS (3)
  - Rash [None]
  - Burning sensation [None]
  - Skin texture abnormal [None]

NARRATIVE: CASE EVENT DATE: 20190407
